FAERS Safety Report 11702781 (Version 1)
Quarter: 2015Q4

REPORT INFORMATION
  Report Type: Spontaneous
  Country: GR (occurrence: GR)
  Receive Date: 20151105
  Receipt Date: 20151105
  Transmission Date: 20160304
  Serious: Yes (Other)
  Sender: FDA-Public Use
  Company Number: GR-WATSON-2015-11852

PATIENT
  Age: 69 Year
  Sex: Male

DRUGS (2)
  1. DEXAMETHASONE (UNKNOWN) [Suspect]
     Active Substance: DEXAMETHASONE
     Indication: LIGHT CHAIN DISEASE
     Dosage: UNK,5 CYCLES
     Route: 065
  2. BORTEZOMIB (UNKNOWN) [Suspect]
     Active Substance: BORTEZOMIB
     Indication: LIGHT CHAIN DISEASE
     Dosage: UNK, 5 CYCLES
     Route: 065

REACTIONS (1)
  - Neurotoxicity [Unknown]
